FAERS Safety Report 12971077 (Version 2)
Quarter: 2016Q4

REPORT INFORMATION
  Report Type: Spontaneous
  Country: US (occurrence: US)
  Receive Date: 20161123
  Receipt Date: 20161128
  Transmission Date: 20170207
  Serious: No
  Sender: FDA-Public Use
  Company Number: US-JAZZ-2016-US-018875

PATIENT
  Sex: Male

DRUGS (33)
  1. LEVETIRACETAM ER [Concomitant]
     Active Substance: LEVETIRACETAM
  2. VITAMIN D3 [Concomitant]
     Active Substance: CHOLECALCIFEROL
  3. CLONAZEPAM. [Concomitant]
     Active Substance: CLONAZEPAM
  4. VALPROIC ACID. [Concomitant]
     Active Substance: VALPROIC ACID
  5. JEVITY                             /00706001/ [Concomitant]
  6. BISACODYL. [Concomitant]
     Active Substance: BISACODYL
  7. SPIRIVA [Concomitant]
     Active Substance: TIOTROPIUM BROMIDE MONOHYDRATE
  8. MONTELUKAST [Concomitant]
     Active Substance: MONTELUKAST SODIUM
  9. DUODERM CGF                        /00007002/ [Concomitant]
  10. 5-HTP                              /00439301/ [Concomitant]
  11. TRAZODONE [Concomitant]
     Active Substance: TRAZODONE HYDROCHLORIDE
  12. SYMBICORT [Concomitant]
     Active Substance: BUDESONIDE\FORMOTEROL FUMARATE DIHYDRATE
  13. IBUPROFEN. [Concomitant]
     Active Substance: IBUPROFEN
  14. XYREM [Suspect]
     Active Substance: SODIUM OXYBATE
     Dosage: 2 G, FIRST DOSE
     Route: 048
     Dates: start: 201411
  15. ISOSOURCE HN [Concomitant]
     Active Substance: AMINO ACIDS\DEXTROSE\ELECTROLYTES NOS\SOYBEAN OIL\VITAMINS
  16. SODIUM CHLORIDE. [Concomitant]
     Active Substance: SODIUM CHLORIDE
  17. CETIRIZINE HCL [Concomitant]
     Active Substance: CETIRIZINE HYDROCHLORIDE
  18. DOCUSATE SODIUM. [Concomitant]
     Active Substance: DOCUSATE SODIUM
  19. XYREM [Suspect]
     Active Substance: SODIUM OXYBATE
     Dosage: 2 G, SECOND DOSE
     Route: 048
     Dates: start: 201411
  20. ALBUTEROL SULFATE HFA [Concomitant]
     Active Substance: ALBUTEROL SULFATE
  21. POLYETHYLENE GLYCOL 3350. [Concomitant]
     Active Substance: POLYETHYLENE GLYCOL 3350
  22. XYREM [Suspect]
     Active Substance: SODIUM OXYBATE
     Dosage: DOSE ADJUSTMENTS
     Route: 048
     Dates: start: 201311, end: 201411
  23. XYREM [Suspect]
     Active Substance: SODIUM OXYBATE
     Dosage: 1.5 G, THIRD DOSE
     Route: 048
     Dates: start: 201411
  24. HYDROCORTISONE. [Concomitant]
     Active Substance: HYDROCORTISONE
  25. FLUNISOLIDE. [Concomitant]
     Active Substance: FLUNISOLIDE
  26. COMBIVENT [Concomitant]
     Active Substance: ALBUTEROL SULFATE\IPRATROPIUM BROMIDE
  27. AMLODIPINE BESYLATE. [Concomitant]
     Active Substance: AMLODIPINE BESYLATE
  28. CITALOPRAM [Concomitant]
     Active Substance: CITALOPRAM HYDROBROMIDE
  29. SIMVASTATIN. [Concomitant]
     Active Substance: SIMVASTATIN
  30. FREEDOM CATH [Concomitant]
  31. XYREM [Suspect]
     Active Substance: SODIUM OXYBATE
     Indication: MYOCLONUS
     Dosage: 1 G, BID
     Route: 048
     Dates: start: 201311, end: 201311
  32. FLONASE                            /00908302/ [Concomitant]
     Active Substance: MOMETASONE FUROATE
  33. TAMSULOSIN HCL [Concomitant]
     Active Substance: TAMSULOSIN

REACTIONS (10)
  - Asthma [Recovering/Resolving]
  - Upper-airway cough syndrome [Not Recovered/Not Resolved]
  - Depression [Recovering/Resolving]
  - Sleep disorder [Unknown]
  - Aphasia [Unknown]
  - Hypertension [Recovering/Resolving]
  - Blood sodium decreased [Unknown]
  - Blood cortisol decreased [Unknown]
  - Anxiety [Recovering/Resolving]
  - Hypersensitivity [Not Recovered/Not Resolved]
